FAERS Safety Report 23540023 (Version 1)
Quarter: 2024Q1

REPORT INFORMATION
  Report Type: Spontaneous
  Country: IT (occurrence: IT)
  Receive Date: 20240219
  Receipt Date: 20240219
  Transmission Date: 20240410
  Serious: Yes (Other)
  Sender: FDA-Public Use
  Company Number: None

PATIENT
  Age: 77 Year
  Sex: Female

DRUGS (5)
  1. FLUOROURACIL [Suspect]
     Active Substance: FLUOROURACIL
     Indication: Colon cancer metastatic
     Dosage: 5-FLUOROURACILE, START OF THERAPY 09/22/2023 - 1ST CYCLE - THERAPY EVERY 14 DAYS
     Route: 042
     Dates: start: 20230922, end: 20230922
  2. FLUOROURACIL [Suspect]
     Active Substance: FLUOROURACIL
     Indication: Colon cancer metastatic
     Dosage: 5-FLUOROURACILE, START OF THERAPY 09/22/2023 - 1ST CYCLE - THERAPY EVERY 14 DAYS
     Route: 042
     Dates: start: 20230922, end: 20230922
  3. IRINOTECAN [Suspect]
     Active Substance: IRINOTECAN
     Indication: Colon cancer metastatic
     Dosage: START OF THERAPY 09/22/2023 - 1ST CYCLE - THERAPY EVERY 14 DAYS
     Route: 042
     Dates: start: 20230922, end: 20230922
  4. BEVACIZUMAB [Suspect]
     Active Substance: BEVACIZUMAB
     Indication: Colon cancer metastatic
     Dosage: START OF THERAPY 09/22/2023 - 1ST CYCLE - THERAPY EVERY 14 DAYS
     Route: 042
     Dates: start: 20230922, end: 20230922
  5. LEVOLEUCOVORIN [Concomitant]
     Active Substance: LEVOLEUCOVORIN
     Indication: Product used for unknown indication
     Dosage: ACIDO LEVO FOLINICO
     Route: 065
     Dates: start: 20230922, end: 20230922

REACTIONS (2)
  - Neutropenia [Recovering/Resolving]
  - Leukopenia [Recovering/Resolving]

NARRATIVE: CASE EVENT DATE: 20231010
